FAERS Safety Report 21915238 (Version 2)
Quarter: 2023Q1

REPORT INFORMATION
  Report Type: Spontaneous
  Country: BE (occurrence: BE)
  Receive Date: 20230126
  Receipt Date: 20230129
  Transmission Date: 20230417
  Serious: Yes (Other)
  Sender: FDA-Public Use
  Company Number: BE-CELLTRION INC.-2023BE001905

PATIENT

DRUGS (4)
  1. INFLIXIMAB [Suspect]
     Active Substance: INFLIXIMAB
     Indication: Crohn^s disease
     Dosage: 5 MG/KG EVERY 8 WEEKS FOR THE PAST 4 MONTHS
  2. AZATHIOPRINE [Suspect]
     Active Substance: AZATHIOPRINE
     Indication: Crohn^s disease
     Dosage: (STABLE DOSE FOR THE PAST 3 MONTHS) FOR AT LEAST 8 MONTHS
  3. MERCAPTOPURINE [Suspect]
     Active Substance: MERCAPTOPURINE
     Indication: Crohn^s disease
  4. METHOTREXATE [Suspect]
     Active Substance: METHOTREXATE
     Indication: Crohn^s disease

REACTIONS (16)
  - Crohn^s disease [Unknown]
  - Crohn^s disease [Unknown]
  - Cyst [Unknown]
  - Poisoning [Unknown]
  - Substance use [Unknown]
  - Alcohol poisoning [Unknown]
  - Pancreatitis acute [Unknown]
  - Abortion spontaneous [Unknown]
  - Tuberculosis [Unknown]
  - Hypersensitivity [Unknown]
  - Epilepsy [Unknown]
  - Infusion related reaction [Unknown]
  - Treatment failure [Unknown]
  - Maternal exposure during pregnancy [Unknown]
  - Loss of therapeutic response [Unknown]
  - Off label use [Unknown]
